FAERS Safety Report 5140982-6 (Version None)
Quarter: 2006Q4

REPORT INFORMATION
  Report Type: 
  Country: None (occurrence: None)
  Receive Date: 20061027
  Receipt Date: 20061027
  Transmission Date: 20070319
  Serious: Yes (Hospitalization)
  Sender: FDA-Public Use
  Company Number: None

PATIENT
  Age: 52 Year
  Sex: Male

DRUGS (14)
  1. PHENYTOIN [Suspect]
     Indication: MOUTH INJURY
     Dosage: 300MG PO DAILY
     Route: 048
     Dates: start: 20050125, end: 20060905
  2. PERCOCET [Concomitant]
  3. AMITRIPTYLINE HCL [Concomitant]
  4. ATENOLOL [Concomitant]
  5. CITALOPRAM HYDROBROMIDE [Concomitant]
  6. FERROUS SULFATE TAB [Concomitant]
  7. FOLIC ACID [Concomitant]
  8. HYDROCHLOROTHIAZIDE [Concomitant]
  9. IBUPROFEN [Concomitant]
  10. MULTI-VITAMIN [Concomitant]
  11. OMEPRAZOLE [Concomitant]
  12. PHENYTOIN [Concomitant]
  13. THIAMINE [Concomitant]
  14. TRAMADOL HCL [Concomitant]

REACTIONS (5)
  - ANTICONVULSANT TOXICITY [None]
  - COORDINATION ABNORMAL [None]
  - DIZZINESS [None]
  - DRUG LEVEL ABOVE THERAPEUTIC [None]
  - NYSTAGMUS [None]
